FAERS Safety Report 14010247 (Version 2)
Quarter: 2017Q4

REPORT INFORMATION
  Report Type: Spontaneous
  Country: FI (occurrence: FI)
  Receive Date: 20170926
  Receipt Date: 20171010
  Transmission Date: 20180321
  Serious: Yes (Hospitalization)
  Sender: FDA-Public Use
  Company Number: FI-ROCHE-1998377

PATIENT
  Age: 76 Year
  Sex: Female
  Weight: 64 kg

DRUGS (4)
  1. ACTILYSE [Suspect]
     Active Substance: ALTEPLASE
     Indication: CEREBRAL INFARCTION
     Dosage: DOSE: 1 MG/ML
     Route: 042
     Dates: start: 20170601, end: 20170601
  2. PANADOL (FINLAND) [Concomitant]
     Indication: PRODUCT USED FOR UNKNOWN INDICATION
  3. LISINOPRIL. [Concomitant]
     Active Substance: LISINOPRIL
     Indication: PRODUCT USED FOR UNKNOWN INDICATION
  4. PROPRAL [Concomitant]
     Indication: PRODUCT USED FOR UNKNOWN INDICATION

REACTIONS (1)
  - Angioedema [Recovered/Resolved]

NARRATIVE: CASE EVENT DATE: 20170601
